FAERS Safety Report 10104827 (Version 2)
Quarter: 2014Q3

REPORT INFORMATION
  Report Type: Other
  Country: US (occurrence: US)
  Receive Date: 20140424
  Receipt Date: 20140805
  Transmission Date: 20150326
  Serious: Yes (Hospitalization, Other)
  Sender: FDA-Public Use
  Company Number: US-GSKPPD-2014GSK002728

PATIENT
  Age: 53 Year
  Sex: Female

DRUGS (11)
  1. LISINOPRIL. [Concomitant]
     Active Substance: LISINOPRIL
  2. ASPIRIN. [Concomitant]
     Active Substance: ASPIRIN
  3. RANEXA [Concomitant]
     Active Substance: RANOLAZINE
  4. ALDACTONE [Concomitant]
     Active Substance: SPIRONOLACTONE
  5. LOPRESSOR [Concomitant]
     Active Substance: METOPROLOL TARTRATE
  6. BETAPACE [Concomitant]
     Active Substance: SOTALOL HYDROCHLORIDE
  7. LOTREL [Concomitant]
     Active Substance: AMLODIPINE BESYLATE\BENAZEPRIL HYDROCHLORIDE
     Dosage: 5/20 MG
  8. DIGOXIN. [Concomitant]
     Active Substance: DIGOXIN
  9. PLAVIX [Concomitant]
     Active Substance: CLOPIDOGREL BISULFATE
  10. AVANDIA [Suspect]
     Active Substance: ROSIGLITAZONE MALEATE
     Indication: DIABETES MELLITUS
     Route: 048
     Dates: start: 200002, end: 200612
  11. AMIODARONE [Concomitant]
     Active Substance: AMIODARONE

REACTIONS (3)
  - Myocardial infarction [None]
  - Ventricular tachycardia [Recovered/Resolved]
  - Coronary artery disease [Recovered/Resolved]

NARRATIVE: CASE EVENT DATE: 20020411
